FAERS Safety Report 17033111 (Version 1)
Quarter: 2019Q4

REPORT INFORMATION
  Report Type: Spontaneous
  Country: CN (occurrence: CN)
  Receive Date: 20191114
  Receipt Date: 20191114
  Transmission Date: 20200122
  Serious: Yes (Hospitalization)
  Sender: FDA-Public Use
  Company Number: CN-FERRINGPH-2019FE07370

PATIENT
  Age: 32 Year
  Sex: Female
  Weight: 62.1 kg

DRUGS (4)
  1. MENOPUR [Suspect]
     Active Substance: FOLLITROPIN\LUTEINIZING HORMONE
     Indication: OVULATION INDUCTION
     Dosage: 75 IU, 1 TIME DAILY
     Route: 058
     Dates: start: 20190925, end: 20190926
  2. LUTEINISING HORMONE (HUMAN) [Suspect]
     Active Substance: LUTROPIN ALFA
     Indication: OVULATION INDUCTION
     Dosage: 75 IU, 1 TIME DAILY
     Route: 058
     Dates: start: 20190924, end: 20190926
  3. HUMAN CHORIONIC GONADOTROPIN [Suspect]
     Active Substance: GONADOTROPHIN, CHORIONIC
     Indication: OVULATION INDUCTION
     Dosage: 0.25 MG, 1 TIME DAILY
     Route: 058
     Dates: start: 20190926, end: 20190926
  4. TRIPTORELIN ACETATE [Suspect]
     Active Substance: TRIPTORELIN ACETATE
     Indication: OVULATION INDUCTION
     Dosage: 0.1 MG, 1 TIME DAILY
     Route: 058
     Dates: start: 20190918, end: 20190926

REACTIONS (5)
  - Dizziness [Recovered/Resolved]
  - Discomfort [Recovered/Resolved]
  - Urine output decreased [Recovered/Resolved]
  - Ovarian hyperstimulation syndrome [Recovered/Resolved]
  - Asthma [Recovered/Resolved]

NARRATIVE: CASE EVENT DATE: 20190930
